FAERS Safety Report 13609416 (Version 2)
Quarter: 2017Q2

REPORT INFORMATION
  Report Type: Spontaneous
  Country: US (occurrence: US)
  Receive Date: 20170602
  Receipt Date: 20170605
  Transmission Date: 20170830
  Serious: No
  Sender: FDA-Public Use
  Company Number: US-PFIZER INC-2868083

PATIENT
  Age: 73 Year
  Sex: Female
  Weight: 65.9 kg

DRUGS (1)
  1. KETOROLAC TROMETHAMINE. [Suspect]
     Active Substance: KETOROLAC TROMETHAMINE
     Indication: MIGRAINE
     Dosage: ATLEAST ONCE A MONTH FOR OVER A YEAR
     Route: 030
     Dates: start: 20150101

REACTIONS (2)
  - Product quality issue [Unknown]
  - Injection site scab [Recovering/Resolving]

NARRATIVE: CASE EVENT DATE: 20150101
